FAERS Safety Report 5211480-6 (Version None)
Quarter: 2006Q4

REPORT INFORMATION
  Report Type: 
  Country: None (occurrence: None)
  Receive Date: 20061115
  Receipt Date: 20060721
  Transmission Date: 20070319
  Serious: No
  Sender: FDA-Public Use
  Company Number: 200614806BWH

PATIENT
  Age: 61 Year
  Sex: Male

DRUGS (7)
  1. NEXAVAR [Suspect]
     Indication: RENAL CELL CARCINOMA STAGE UNSPECIFIED
     Dosage: ORAL
     Route: 048
     Dates: start: 20060713, end: 20060717
  2. FENTANYL TRANSDERMAL SYSTEM [Concomitant]
  3. OXYCONTIN [Concomitant]
  4. BACLOPAR [Concomitant]
  5. FLONASE [Concomitant]
  6. NEXIUM [Concomitant]
  7. ANTIHYPERTENSIVE [Concomitant]

REACTIONS (8)
  - CHILLS [None]
  - DIARRHOEA [None]
  - FEELING HOT AND COLD [None]
  - INFLUENZA LIKE ILLNESS [None]
  - PAIN IN EXTREMITY [None]
  - PYREXIA [None]
  - RASH MACULAR [None]
  - RASH MACULO-PAPULAR [None]
